FAERS Safety Report 4358528-9 (Version None)
Quarter: 2004Q2

REPORT INFORMATION
  Report Type: 
  Country: None (occurrence: None)
  Receive Date: 20040512
  Receipt Date: 20040426
  Transmission Date: 20050107
  Serious: Yes (Hospitalization)
  Sender: FDA-Public Use
  Company Number: 2004-BP-03180RO

PATIENT
  Age: 69 Year
  Sex: Male

DRUGS (5)
  1. LEUCOVORIN CALCIUM [Suspect]
     Indication: GASTRIC CANCER
     Dosage: 90 MG PER CYCLE (SEE TEXT), PO
     Route: 048
     Dates: start: 20031125
  2. TAXOL [Suspect]
     Indication: GASTRIC CANCER
     Dosage: 160 MG PER CYCLE (SEE TEXT), IV
     Route: 042
     Dates: start: 20031125
  3. UFT [Suspect]
     Indication: GASTRIC CANCER
     Dosage: 500 MG PER CYCLE (500 MG), PO
     Route: 048
     Dates: start: 20031125
  4. TOFRANIL (IMIPRANE HYDROCHLORIDE) [Concomitant]
  5. FANTA [Concomitant]

REACTIONS (4)
  - ASTHENIA [None]
  - GAIT DISTURBANCE [None]
  - METASTASES TO CENTRAL NERVOUS SYSTEM [None]
  - NEUROPATHY [None]
